FAERS Safety Report 16935135 (Version 4)
Quarter: 2019Q4

REPORT INFORMATION
  Report Type: Spontaneous
  Country: US (occurrence: US)
  Receive Date: 20191018
  Receipt Date: 20191213
  Transmission Date: 20200122
  Serious: Yes (Other)
  Sender: FDA-Public Use
  Company Number: US-PFIZER INC-2019448305

PATIENT
  Age: 92 Year
  Sex: Female
  Weight: 74.38 kg

DRUGS (2)
  1. METHOTREXATE SODIUM. [Suspect]
     Active Substance: METHOTREXATE SODIUM
     Dosage: 2.5 MG, WEEKLY (2.5 MILLIGRAMS, 5 TABLETS, QWK)
     Dates: start: 20161212
  2. ENBREL [Suspect]
     Active Substance: ETANERCEPT
     Dosage: 50 MILLIGRAMS, QWK
     Route: 065
     Dates: start: 20160410

REACTIONS (1)
  - Cytopenia [Unknown]
